FAERS Safety Report 6263790-1 (Version None)
Quarter: 2009Q3

REPORT INFORMATION
  Report Type: 
  Country: None (occurrence: None)
  Receive Date: 20090710
  Receipt Date: 20090707
  Transmission Date: 20100115
  Serious: Yes (Death, Other)
  Sender: FDA-Public Use
  Company Number: PHHY2008MX33466

PATIENT
  Sex: Female

DRUGS (1)
  1. DIOVAN HCT [Suspect]
     Indication: HYPERTENSION
     Dosage: 1 DF (160/25 MG)/ DAY
     Route: 048
     Dates: start: 20050101, end: 20080522

REACTIONS (7)
  - ASTHMA [None]
  - CARDIAC FAILURE [None]
  - CEREBRAL HAEMORRHAGE [None]
  - CEREBRAL INFARCTION [None]
  - HYPERTENSION [None]
  - MYOCARDIAL INFARCTION [None]
  - SUBDURAL EFFUSION [None]
